FAERS Safety Report 7674243-8 (Version None)
Quarter: 2011Q3

REPORT INFORMATION
  Report Type: 
  Country: None (occurrence: None)
  Receive Date: 20110810
  Receipt Date: 20110802
  Transmission Date: 20111222
  Serious: Yes (Life-Threatening, Hospitalization, Other)
  Sender: FDA-Public Use
  Company Number: DE-CELGENEUS-062-21880-10082887

PATIENT
  Age: 67 Year
  Sex: Male
  Weight: 70 kg

DRUGS (13)
  1. REVLIMID [Suspect]
     Dosage: 10 MILLIGRAM
     Route: 048
     Dates: start: 20100709, end: 20100827
  2. KONAKION [Concomitant]
     Dosage: 10 MILLIGRAM
     Route: 041
     Dates: start: 20100826, end: 20100827
  3. CALCIUM CARBONATE [Concomitant]
     Indication: OSTEOPOROSIS
     Route: 048
  4. ENOXAPARIN SODIUM [Concomitant]
     Indication: THROMBOSIS PROPHYLAXIS
     Dosage: .6 UNKNOWN
     Route: 058
  5. ALBUTEROL [Concomitant]
     Route: 065
  6. METOPROLOL TARTRATE [Concomitant]
     Indication: HYPERTENSION
     Dosage: 25.5 UNKNOWN
     Route: 048
  7. PANTAZOL [Concomitant]
     Dosage: 40 MILLIGRAM
     Route: 048
     Dates: start: 20100628, end: 20100906
  8. METOPROLOL TARTRATE [Concomitant]
     Indication: HYPERTONIA
     Dosage: 50 MILLIGRAM
     Route: 041
  9. METOPROLOL TARTRATE [Concomitant]
     Indication: ATRIAL FIBRILLATION
     Dosage: 5 MILLIGRAM
     Route: 065
  10. CALCIFEROL [Concomitant]
     Indication: OSTEOPOROSIS
     Dosage: 1000 UNKNOWN
     Route: 048
  11. RAMILION [Concomitant]
     Indication: HYPERTONIA
     Dosage: 2.5 MILLIGRAM
     Route: 048
  12. RAMIPRIL [Concomitant]
     Indication: HYPERTENSION
     Dosage: 2.5 UNKNOWN
     Route: 048
  13. ERGOCALCIFEROL [Concomitant]
     Indication: OSTEOPOROSIS
     Dosage: 1000 UNKNOWN
     Route: 048

REACTIONS (5)
  - ATRIAL FIBRILLATION [None]
  - INFECTION [None]
  - FEBRILE NEUTROPENIA [None]
  - LEUKOPENIA [None]
  - PYREXIA [None]
